FAERS Safety Report 5763456-8 (Version None)
Quarter: 2008Q2

REPORT INFORMATION
  Report Type: 
  Country: None (occurrence: None)
  Receive Date: 20080529
  Receipt Date: 20080416
  Transmission Date: 20081010
  Serious: Yes (Hospitalization, Other)
  Sender: FDA-Public Use
  Company Number: US-JNJFOC-20080401864

PATIENT
  Age: 64 Year
  Sex: Female
  Weight: 85.2762 kg

DRUGS (1)
  1. DACOGEN [Suspect]
     Indication: MYELODYSPLASTIC SYNDROME
     Dosage: 38 MG, INTRAVENOUS
     Route: 042
     Dates: start: 20080114, end: 20080118

REACTIONS (3)
  - FEBRILE NEUTROPENIA [None]
  - PNEUMONIA [None]
  - STREPTOCOCCAL BACTERAEMIA [None]
